FAERS Safety Report 22229251 (Version 1)
Quarter: 2023Q2

REPORT INFORMATION
  Report Type: Spontaneous
  Country: US (occurrence: US)
  Receive Date: 20230419
  Receipt Date: 20230419
  Transmission Date: 20230722
  Serious: No
  Sender: FDA-Public Use
  Company Number: US-ALLERGAN-2217241US

PATIENT
  Age: 63 Year
  Sex: Female

DRUGS (7)
  1. RESTASIS [Suspect]
     Active Substance: CYCLOSPORINE
     Indication: Preoperative care
     Dosage: 2 GTT, BID
     Route: 047
     Dates: start: 20220418
  2. RESTASIS [Suspect]
     Active Substance: CYCLOSPORINE
     Dosage: 2 GTT, BID
     Route: 047
     Dates: start: 20220418
  3. LOPID [Concomitant]
     Active Substance: GEMFIBROZIL
     Indication: Blood cholesterol increased
     Dosage: 600 MG, QD
     Route: 048
     Dates: start: 2010
  4. VITAMIN D NOS [Concomitant]
     Active Substance: VITAMIN D NOS
     Indication: Product used for unknown indication
  5. VITAMIN B12 [Concomitant]
     Active Substance: CYANOCOBALAMIN
     Indication: Product used for unknown indication
  6. UNISOL-4 SOLUTION [Concomitant]
     Indication: Product used for unknown indication
  7. PURILENS PLUS [Concomitant]
     Indication: Product used for unknown indication
     Dosage: UNK

REACTIONS (8)
  - Eye ulcer [Recovering/Resolving]
  - Expired product administered [Unknown]
  - Visual impairment [Not Recovered/Not Resolved]
  - Eye infection [Recovering/Resolving]
  - Eyelash changes [Recovered/Resolved]
  - Off label use [Unknown]
  - Vision blurred [Not Recovered/Not Resolved]
  - Drug ineffective [Unknown]

NARRATIVE: CASE EVENT DATE: 20220401
